FAERS Safety Report 10420570 (Version 1)
Quarter: 2014Q3

REPORT INFORMATION
  Report Type: Spontaneous
  Country: US (occurrence: None)
  Receive Date: 20140714
  Receipt Date: 20140714
  Transmission Date: 20150326
  Serious: No
  Sender: FDA-Public Use
  Company Number: 2014US003094

PATIENT
  Age: 45 Year
  Sex: Female

DRUGS (3)
  1. ICLUSIG [Suspect]
     Active Substance: PONATINIB
     Indication: CHRONIC MYELOID LEUKAEMIA
     Route: 048
     Dates: start: 20140205
  2. PEPCID [Concomitant]
     Active Substance: FAMOTIDINE
  3. CARAGATE (SUCRALFATE) [Concomitant]

REACTIONS (8)
  - Gastrooesophageal reflux disease [None]
  - Rash papular [None]
  - Piloerection [None]
  - Constipation [None]
  - Thyroid disorder [None]
  - Abdominal pain [None]
  - Dry mouth [None]
  - Nausea [None]

NARRATIVE: CASE EVENT DATE: 2014
